FAERS Safety Report 12931778 (Version 2)
Quarter: 2016Q4

REPORT INFORMATION
  Report Type: Report from Study
  Country: CO (occurrence: CO)
  Receive Date: 20161111
  Receipt Date: 20161130
  Transmission Date: 20170207
  Serious: Yes (Life-Threatening, Hospitalization, Other)
  Sender: FDA-Public Use
  Company Number: CO-AMGEN-COLSL2016135407

PATIENT
  Age: 55 Year
  Sex: Female
  Weight: 63 kg

DRUGS (2)
  1. NPLATE [Suspect]
     Active Substance: ROMIPLOSTIM
     Indication: IMMUNE THROMBOCYTOPENIC PURPURA
     Dosage: 250 MUG, QWK
     Route: 058
     Dates: start: 20160803
  2. NPLATE [Suspect]
     Active Substance: ROMIPLOSTIM
     Dosage: 63 MUG, QWK
     Route: 058
     Dates: start: 20161026

REACTIONS (6)
  - Musculoskeletal chest pain [Not Recovered/Not Resolved]
  - Petechiae [Not Recovered/Not Resolved]
  - Pleural effusion [Not Recovered/Not Resolved]
  - Thrombocytopenia [Recovered/Resolved]
  - Contusion [Not Recovered/Not Resolved]
  - Ecchymosis [Not Recovered/Not Resolved]

NARRATIVE: CASE EVENT DATE: 20160926
